FAERS Safety Report 4334998-7 (Version None)
Quarter: 2004Q2

REPORT INFORMATION
  Report Type: 
  Country: None (occurrence: None)
  Receive Date: 20040408
  Receipt Date: 20020618
  Transmission Date: 20050107
  Serious: Yes (Disabling)
  Sender: FDA-Public Use
  Company Number: PHNU2002DE02190

PATIENT
  Age: 73 Year
  Sex: Female
  Weight: 70 kg

DRUGS (6)
  1. GLUCOBAY [Concomitant]
     Indication: DIABETES MELLITUS
     Dosage: 100 MG, QD
     Route: 048
  2. DESFERAL [Suspect]
     Indication: HAEMOSIDEROSIS
     Route: 058
     Dates: start: 20020101, end: 20020101
  3. DESFERAL [Suspect]
     Dosage: UNK, UNK
     Route: 058
     Dates: start: 20020412, end: 20020413
  4. GLUCOBAY [Concomitant]
     Indication: DIABETES MELLITUS
     Dosage: 50 MG, QD
     Route: 048
  5. GLUCOBAY [Concomitant]
     Dosage: 50 MG, TID
     Dates: start: 19960101
  6. TRAUMEEL S [Concomitant]
     Dosage: 1 DF, ONCE/SINGLE
     Route: 030
     Dates: start: 20020414, end: 20020414

REACTIONS (6)
  - ERYTHEMA [None]
  - NAUSEA [None]
  - SKIN SWELLING [None]
  - TOOTH LOSS [None]
  - VERTIGO [None]
  - VOMITING [None]
